FAERS Safety Report 16819579 (Version 8)
Quarter: 2020Q3

REPORT INFORMATION
  Report Type: Report from Study
  Country: US (occurrence: US)
  Receive Date: 20190917
  Receipt Date: 20200721
  Transmission Date: 20201102
  Serious: Yes (Hospitalization, Other)
  Sender: FDA-Public Use
  Company Number: US-ACTELION-A-NJ2018-169121

PATIENT
  Age: 57 Year
  Sex: Female
  Weight: 70.3 kg

DRUGS (18)
  1. OMEPRAZOLE. [Concomitant]
     Active Substance: OMEPRAZOLE
     Dosage: 40 MG
  2. METHYLPREDNISOLONE. [Concomitant]
     Active Substance: METHYLPREDNISOLONE
     Dosage: 4 MG
  3. DIGOXIN. [Concomitant]
     Active Substance: DIGOXIN
     Dosage: 125 MCG, QD
  4. SPIRONOLACTONE. [Concomitant]
     Active Substance: SPIRONOLACTONE
     Dosage: 25 MG, QD
  5. TORSEMIDE. [Concomitant]
     Active Substance: TORSEMIDE
     Dosage: 10 MG, TID
  6. OXYGEN. [Concomitant]
     Active Substance: OXYGEN
  7. APIXABAN [Concomitant]
     Active Substance: APIXABAN
     Dosage: 5 MG
  8. ROSUVASTATIN. [Concomitant]
     Active Substance: ROSUVASTATIN
     Dosage: 10 MG
  9. ELIQUIS [Concomitant]
     Active Substance: APIXABAN
     Dosage: 2.5 MG, BID
  10. URSODIOL. [Concomitant]
     Active Substance: URSODIOL
     Dosage: 300 MCG, BID
  11. DOFETILIDE. [Concomitant]
     Active Substance: DOFETILIDE
     Dosage: 125 MCG
  12. TRACLEER [Suspect]
     Active Substance: BOSENTAN
     Indication: PULMONARY HYPERTENSION
     Dosage: 125 MG, BID
     Route: 048
     Dates: start: 20081208
  13. LEVAQUIN [Concomitant]
     Active Substance: LEVOFLOXACIN
  14. ALBUTEROL. [Concomitant]
     Active Substance: ALBUTEROL
     Dosage: 90 MCG
  15. VITAMIN D2 [Suspect]
     Active Substance: ERGOCALCIFEROL
     Indication: VITAMIN D DEFICIENCY
     Dosage: 50000 UNITS PER WEEK
     Route: 065
  16. OXYCODONE AND ACETAMINOPHEN [Concomitant]
     Active Substance: ACETAMINOPHEN\OXYCODONE HYDROCHLORIDE
     Dosage: 5?325 MG
  17. OXYCODONE [Concomitant]
     Active Substance: OXYCODONE
     Dosage: 40 MG, Q12HRS
  18. LINZESS [Concomitant]
     Active Substance: LINACLOTIDE
     Dosage: 72 MCG

REACTIONS (16)
  - Atrial fibrillation [Unknown]
  - Vitamin D deficiency [Unknown]
  - Skin lesion [Unknown]
  - Cardiac pacemaker insertion [Unknown]
  - Pneumonia [Unknown]
  - Dyspnoea [Unknown]
  - Nausea [Unknown]
  - Dizziness [Recovered/Resolved]
  - Epistaxis [Unknown]
  - Fluid retention [Unknown]
  - Heart rate increased [Unknown]
  - Blood glucose increased [Unknown]
  - Cardiac ablation [Unknown]
  - Cardioversion [Recovered/Resolved]
  - Musculoskeletal chest pain [Unknown]
  - Vomiting [Unknown]

NARRATIVE: CASE EVENT DATE: 201906
